FAERS Safety Report 4733336-5 (Version None)
Quarter: 2005Q3

REPORT INFORMATION
  Report Type: 
  Country: None (occurrence: None)
  Receive Date: 20050725
  Receipt Date: 20041221
  Transmission Date: 20060218
  Serious: Yes (Death)
  Sender: FDA-Public Use
  Company Number: USA-2004-0018129

PATIENT
  Age: 32 Year
  Sex: Female

DRUGS (8)
  1. MORPHINE SULFATE [Suspect]
  2. HYDROMORPHONE HCL [Suspect]
  3. CODEINE SUL TAB [Suspect]
  4. VICODIN [Suspect]
  5. ACETAMINOPHEN [Suspect]
  6. ALPRAZOLAM [Suspect]
  7. CARISOPRODOL (CARISOPRODOL) [Suspect]
  8. PHENOBARBITAL TAB [Suspect]

REACTIONS (3)
  - ACCIDENTAL OVERDOSE [None]
  - COMA [None]
  - MULTIPLE DRUG OVERDOSE [None]
